FAERS Safety Report 10301645 (Version 1)
Quarter: 2014Q3

REPORT INFORMATION
  Report Type: Spontaneous
  Country: US (occurrence: None)
  Receive Date: 20140709
  Receipt Date: 20140709
  Transmission Date: 20150326
  Serious: Yes (Other)
  Sender: FDA-Public Use
  Company Number: None

PATIENT
  Age: 48 Year
  Sex: Female
  Weight: 71.67 kg

DRUGS (4)
  1. DULOXETINE [Suspect]
     Active Substance: DULOXETINE
     Indication: PAIN IN EXTREMITY
     Dosage: 60 MG ONCE DAILY TAKEN BY MOUTH
     Route: 048
     Dates: start: 20140609, end: 20140702
  2. DULOXETINE [Suspect]
     Active Substance: DULOXETINE
     Indication: FIBROMYALGIA
     Dosage: 60 MG ONCE DAILY TAKEN BY MOUTH
     Route: 048
     Dates: start: 20140609, end: 20140702
  3. DULOXETINE [Suspect]
     Active Substance: DULOXETINE
     Indication: PAIN
     Dosage: 60 MG ONCE DAILY TAKEN BY MOUTH
     Route: 048
     Dates: start: 20140609, end: 20140702
  4. DULOXETINE [Suspect]
     Active Substance: DULOXETINE
     Indication: NECK PAIN
     Dosage: 60 MG ONCE DAILY TAKEN BY MOUTH
     Route: 048
     Dates: start: 20140609, end: 20140702

REACTIONS (6)
  - Gastric disorder [None]
  - Product substitution issue [None]
  - Unevaluable event [None]
  - Withdrawal syndrome [None]
  - Migraine [None]
  - Impaired work ability [None]

NARRATIVE: CASE EVENT DATE: 20140609
